FAERS Safety Report 8372048-6 (Version None)
Quarter: 2012Q2

REPORT INFORMATION
  Report Type: 
  Country: None (occurrence: None)
  Receive Date: 20120520
  Receipt Date: 20120511
  Transmission Date: 20120825
  Serious: Yes (Other)
  Sender: FDA-Public Use
  Company Number: PHHY2012PL040609

PATIENT
  Sex: Female
  Weight: 53 kg

DRUGS (3)
  1. AMOXICILLIN [Concomitant]
     Dosage: UNK UKN, UNK
  2. CYCLOSPORINE [Suspect]
     Indication: COLITIS ULCERATIVE
     Dosage: 2 MG/KG BODY WEIGHT FOR 5 DAYS.
     Route: 042
  3. LINCOSAMIDES [Concomitant]
     Dosage: UNK UKN, UNK

REACTIONS (7)
  - PANCYTOPENIA [None]
  - LIVER INJURY [None]
  - INFECTIOUS MONONUCLEOSIS [None]
  - HERPES VIRUS INFECTION [None]
  - EPSTEIN-BARR VIRUS INFECTION [None]
  - DERMATITIS HERPETIFORMIS [None]
  - LYMPHADENOPATHY [None]
